FAERS Safety Report 13914236 (Version 1)
Quarter: 2017Q3

REPORT INFORMATION
  Report Type: Spontaneous
  Country: US (occurrence: US)
  Receive Date: 20170828
  Receipt Date: 20170828
  Transmission Date: 20171127
  Serious: No
  Sender: FDA-Public Use
  Company Number: US-ROCHE-1138025

PATIENT
  Age: 11 Year
  Sex: Male
  Weight: 37.3 kg

DRUGS (1)
  1. NUTROPIN AQ [Suspect]
     Active Substance: SOMATROPIN
     Indication: DWARFISM
     Route: 058
     Dates: start: 19970909

REACTIONS (2)
  - Dermatitis contact [Unknown]
  - Arthralgia [Unknown]

NARRATIVE: CASE EVENT DATE: 19980624
